FAERS Safety Report 4539844-4 (Version None)
Quarter: 2004Q4

REPORT INFORMATION
  Report Type: 
  Country: None (occurrence: None)
  Receive Date: 20041222
  Receipt Date: 20041203
  Transmission Date: 20050328
  Serious: Yes (Hospitalization)
  Sender: FDA-Public Use
  Company Number: USA041285295

PATIENT
  Age: 43 Year
  Sex: Female
  Weight: 82 kg

DRUGS (6)
  1. STRATTERA [Suspect]
     Dosage: 25 MG DAY
     Dates: start: 20030601, end: 20041124
  2. PROZAC [Suspect]
     Indication: DEPRESSION
     Dosage: 5 MG DAY
     Dates: start: 20000101
  3. RITALIN [Concomitant]
  4. PREDNISONE [Concomitant]
  5. BENADRYL [Concomitant]
  6. ASPIRIN [Concomitant]

REACTIONS (22)
  - ABNORMAL BEHAVIOUR [None]
  - AGGRESSION [None]
  - ALCOHOL POISONING [None]
  - ANGER [None]
  - ANXIETY [None]
  - ASTHMA [None]
  - CONDITION AGGRAVATED [None]
  - FATIGUE [None]
  - FEAR [None]
  - INSOMNIA [None]
  - MARKEDLY REDUCED DIETARY INTAKE [None]
  - MULTIPLE DRUG OVERDOSE [None]
  - PAIN [None]
  - PANIC ATTACK [None]
  - SCREAMING [None]
  - SELF MUTILATION [None]
  - SKIN LACERATION [None]
  - SOMNOLENCE [None]
  - SUICIDAL IDEATION [None]
  - THINKING ABNORMAL [None]
  - TREATMENT NONCOMPLIANCE [None]
  - TREMOR [None]
